FAERS Safety Report 18289238 (Version 1)
Quarter: 2020Q3

REPORT INFORMATION
  Report Type: Spontaneous
  Country: US (occurrence: US)
  Receive Date: 20200918
  Receipt Date: 20200918
  Transmission Date: 20201103
  Serious: No
  Sender: FDA-Public Use
  Company Number: None

PATIENT
  Age: 58 Year
  Sex: Male

DRUGS (1)
  1. IMATINIB MESYLATE 400MG TEVA PHARMACEUTICALS USA [Suspect]
     Active Substance: IMATINIB MESYLATE
     Indication: MALIGNANT MELANOMA
     Route: 048
     Dates: start: 20200505

REACTIONS (4)
  - Ageusia [None]
  - Peripheral swelling [None]
  - Oral disorder [None]
  - Oral herpes [None]

NARRATIVE: CASE EVENT DATE: 20200505
